FAERS Safety Report 4738954-6 (Version None)
Quarter: 2005Q3

REPORT INFORMATION
  Report Type: 
  Country: None (occurrence: None)
  Receive Date: 20050801
  Receipt Date: 20050310
  Transmission Date: 20060218
  Serious: Yes (Life-Threatening, Hospitalization)
  Sender: FDA-Public Use
  Company Number: 212291

PATIENT
  Age: 75 Year
  Sex: Female
  Weight: 66.7 kg

DRUGS (7)
  1. HERCEPTIN [Suspect]
     Indication: BREAST CANCER METASTATIC
     Dosage: 400 MG/ML, Q3W, INTRAVENOUS
     Route: 042
     Dates: start: 20020101
  2. ZOMETA [Concomitant]
  3. FEMARA [Concomitant]
  4. MAXZIDE [Concomitant]
  5. INDERAL (PROPRANOLOL HYDROCHLORIDE) PWDR + SOLVENT, INFUSION SOLN, 2 M [Concomitant]
  6. ATIVAN [Concomitant]
  7. COUMADIN [Concomitant]

REACTIONS (1)
  - PULMONARY OEDEMA [None]
